FAERS Safety Report 5407475-X (Version None)
Quarter: 2007Q3

REPORT INFORMATION
  Report Type: 
  Country: None (occurrence: None)
  Receive Date: 20070807
  Receipt Date: 20070726
  Transmission Date: 20080115
  Serious: No
  Sender: FDA-Public Use
  Company Number: DE-ELI_LILLY_AND_COMPANY-DE200707006138

PATIENT
  Age: 7 Year
  Sex: Male

DRUGS (7)
  1. STRATTERA [Suspect]
     Indication: ATTENTION DEFICIT/HYPERACTIVITY DISORDER
     Dosage: 28 MG (10 MG + 18 MG), UNKNOWN
     Route: 048
     Dates: start: 20070709, end: 20070716
  2. STRATTERA [Suspect]
     Dosage: 25 MG, UNKNOWN
     Route: 048
     Dates: start: 20070717
  3. CONVULSOFIN [Concomitant]
     Dosage: 0.5 D/F, EACH MORNING
     Route: 048
  4. CONVULSOFIN [Concomitant]
     Dosage: 0.5 D/F, EACH EVENING
     Route: 048
     Dates: start: 20070604
  5. LAMOTRIGINE [Concomitant]
     Dosage: 25 MG, EACH MORNING
     Route: 048
  6. LAMOTRIGINE [Concomitant]
     Dosage: 1 D/F, MIDDAY
     Route: 048
     Dates: start: 20070604
  7. LAMOTRIGINE [Concomitant]
     Dosage: 50 MG (25 MG X 2 D/F), EACH EVENING
     Route: 048
     Dates: start: 20070604

REACTIONS (1)
  - ELECTROCARDIOGRAM QT PROLONGED [None]
